FAERS Safety Report 5007202-4 (Version None)
Quarter: 2006Q1

REPORT INFORMATION
  Report Type: 
  Country: None (occurrence: None)
  Receive Date: 20060320
  Receipt Date: 20050611
  Transmission Date: 20060701
  Serious: Yes (Other)
  Sender: FDA-Public Use
  Company Number: 2005-06-0828

PATIENT
  Sex: Male

DRUGS (2)
  1. PEG-INTRON [Suspect]
     Indication: HEPATITIS C
  2. REBETOL [Suspect]
     Indication: HEPATITIS C
     Dosage: ORAL
     Route: 048

REACTIONS (18)
  - AMNESIA [None]
  - ANGER [None]
  - ANOREXIA [None]
  - ANXIETY [None]
  - BALANCE DISORDER [None]
  - CONFUSIONAL STATE [None]
  - DEPRESSION [None]
  - FATIGUE [None]
  - INSOMNIA [None]
  - MYALGIA [None]
  - NAUSEA [None]
  - NERVOUSNESS [None]
  - PAIN [None]
  - PARANOIA [None]
  - SPIDER NAEVUS [None]
  - SPLENOMEGALY [None]
  - TREMOR [None]
  - WEIGHT DECREASED [None]
